FAERS Safety Report 20378217 (Version 2)
Quarter: 2022Q2

REPORT INFORMATION
  Report Type: Spontaneous
  Country: FR (occurrence: FR)
  Receive Date: 20220126
  Receipt Date: 20220519
  Transmission Date: 20220721
  Serious: Yes (Hospitalization, Disabling)
  Sender: FDA-Public Use
  Company Number: FR-MYLANLABS-2020M1098712

PATIENT
  Age: 71 Year
  Sex: Female

DRUGS (1)
  1. LEVOFLOXACIN [Suspect]
     Active Substance: LEVOFLOXACIN
     Indication: Cystitis
     Dosage: 500 MILLIGRAM
     Dates: start: 202001, end: 20200114

REACTIONS (6)
  - Tendon rupture [Unknown]
  - Urinary tract infection [Not Recovered/Not Resolved]
  - Muscle strain [Unknown]
  - Balance disorder [Unknown]
  - Haematoma [Unknown]
  - Diverticulitis [Unknown]

NARRATIVE: CASE EVENT DATE: 20200810
